FAERS Safety Report 5729820-8 (Version None)
Quarter: 2008Q2

REPORT INFORMATION
  Report Type: 
  Country: None (occurrence: None)
  Receive Date: 20080501
  Receipt Date: 20080403
  Transmission Date: 20081010
  Serious: Yes (Death)
  Sender: FDA-Public Use
  Company Number: 2008S1005653

PATIENT
  Age: 61 Year
  Sex: Female

DRUGS (6)
  1. TRAMADOL HCL [Suspect]
  2. MIRTAZAPINE [Suspect]
  3. TRIMIPRAMINE MALEATE [Suspect]
  4. ETHANOL (ETHANOL) [Suspect]
  5. HYDROXYZINE [Concomitant]
  6. ACETAMINOPHEN [Concomitant]

REACTIONS (1)
  - DRUG TOXICITY [None]
